FAERS Safety Report 6587848-2 (Version None)
Quarter: 2010Q1

REPORT INFORMATION
  Report Type: 
  Country: None (occurrence: None)
  Receive Date: 20100129
  Receipt Date: 20091022
  Transmission Date: 20100710
  Serious: Yes (Other)
  Sender: FDA-Public Use
  Company Number: 412659

PATIENT
  Age: 45 Year
  Sex: Female
  Weight: 122.47 kg

DRUGS (5)
  1. OXALIPLATIN [Suspect]
     Indication: COLON CANCER
     Dosage: INTRAVENOUS (NOT OTHERWISE SPECIFIED)
     Route: 042
     Dates: start: 20090911, end: 20090911
  2. ELOXATIN [Suspect]
     Indication: COLON CANCER
     Dosage: INTRAVENOUS (NOT OTHERWISE SPECIFIED)
     Route: 042
     Dates: start: 20090911, end: 20090911
  3. (ZOLFRAN /00955301/) [Concomitant]
  4. (TAGAMET /00397401/) [Concomitant]
  5. DECADRON [Concomitant]

REACTIONS (1)
  - ANAPHYLACTIC SHOCK [None]
